FAERS Safety Report 7071714-2 (Version None)
Quarter: 2010Q4

REPORT INFORMATION
  Report Type: 
  Country: None (occurrence: None)
  Receive Date: 20101029
  Receipt Date: 20091012
  Transmission Date: 20110411
  Serious: No
  Sender: FDA-Public Use
  Company Number: A0811408A

PATIENT
  Age: 43 Year
  Sex: Male

DRUGS (3)
  1. ADVAIR DISKUS 100/50 [Suspect]
     Dosage: 1PUFF TWICE PER DAY
     Route: 055
     Dates: start: 20091009, end: 20091010
  2. ALBUTEROL [Concomitant]
  3. ANTI-ANXIETY MED- NAME UNKNOWN [Concomitant]

REACTIONS (4)
  - ASTHENIA [None]
  - DECREASED APPETITE [None]
  - DYSPHAGIA [None]
  - OESOPHAGEAL DISORDER [None]
